FAERS Safety Report 14474051 (Version 1)
Quarter: 2018Q1

REPORT INFORMATION
  Report Type: Spontaneous
  Country: US (occurrence: US)
  Receive Date: 20180201
  Receipt Date: 20180201
  Transmission Date: 20180509
  Serious: Yes (Other)
  Sender: FDA-Public Use
  Company Number: US-CIPLA LTD.-2018US03042

PATIENT

DRUGS (10)
  1. DOCETAXEL. [Suspect]
     Active Substance: DOCETAXEL
     Indication: TRIPLE NEGATIVE BREAST CANCER
     Dosage: 75 MG/M2, 2 CYCLES
     Route: 042
     Dates: start: 2004, end: 200411
  2. GEMCITABINE [Suspect]
     Active Substance: GEMCITABINE\GEMCITABINE HYDROCHLORIDE
     Indication: TRIPLE NEGATIVE BREAST CANCER
     Dosage: 1000 MG/M2, DAYS 1, 8, AND 15, EVERY 28-DAY CYCLE
     Route: 065
  3. ADRIAMYCIN [Suspect]
     Active Substance: DOXORUBICIN HYDROCHLORIDE
     Indication: TRIPLE NEGATIVE BREAST CANCER
     Dosage: 50 MG/M2, UNK
     Route: 042
     Dates: start: 2004, end: 200411
  4. CYCLOPHOSPHAMIDE. [Suspect]
     Active Substance: CYCLOPHOSPHAMIDE
     Indication: TRIPLE NEGATIVE BREAST CANCER
     Dosage: 100 MG/M2 DAY 1 TO DAY 14
     Route: 065
     Dates: start: 2004, end: 200411
  5. CAPECITABINE. [Suspect]
     Active Substance: CAPECITABINE
     Indication: TRIPLE NEGATIVE BREAST CANCER
     Dosage: 1500 MG, BID, 3 CYCLES
     Route: 048
     Dates: start: 200905
  6. FLUOROURACIL. [Suspect]
     Active Substance: FLUOROURACIL
     Indication: TRIPLE NEGATIVE BREAST CANCER
     Dosage: 600 MG/M2, ON DAY 1 AND DAY 8
     Route: 042
     Dates: start: 2004, end: 200411
  7. EXEMESTANE. [Suspect]
     Active Substance: EXEMESTANE
     Indication: TRIPLE NEGATIVE BREAST CANCER
     Dosage: 25 MG, DAILY
     Route: 065
     Dates: start: 200502
  8. METHOTREXATE. [Suspect]
     Active Substance: METHOTREXATE
     Indication: TRIPLE NEGATIVE BREAST CANCER
     Dosage: 40 MG/M2, ON DAY 1 AND DAY 8
     Route: 042
     Dates: start: 2004, end: 200411
  9. GEMCITABINE [Suspect]
     Active Substance: GEMCITABINE\GEMCITABINE HYDROCHLORIDE
     Dosage: 1000 MG/M2, ON DAYS 1, 8, AND 15, EVERY 28-DAY
     Route: 065
     Dates: start: 201005
  10. PACLITAXEL. [Suspect]
     Active Substance: PACLITAXEL
     Indication: TRIPLE NEGATIVE BREAST CANCER
     Dosage: 90 MG/M2, 6 CYCLES, WEEKLY
     Route: 065

REACTIONS (4)
  - Malignant neoplasm progression [Recovered/Resolved]
  - Disease recurrence [Recovered/Resolved]
  - Rash [Unknown]
  - Palmar-plantar erythrodysaesthesia syndrome [Unknown]
